FAERS Safety Report 10187115 (Version 1)
Quarter: 2014Q2

REPORT INFORMATION
  Report Type: Other
  Country: FR (occurrence: FR)
  Receive Date: 20140522
  Receipt Date: 20140522
  Transmission Date: 20141212
  Serious: Yes (Other)
  Sender: FDA-Public Use
  Company Number: FR-ASTELLAS-2014EU005498

PATIENT
  Age: 24 Year
  Sex: Male

DRUGS (15)
  1. ADVAGRAF [Suspect]
     Indication: PROPHYLAXIS
     Route: 048
     Dates: start: 20140409
  2. ADVAGRAF [Suspect]
     Dosage: 9 MG/ DAY
  3. RIVOTRIL [Suspect]
     Indication: EPILEPSY
     Route: 048
     Dates: start: 2009, end: 20140409
  4. LAMICTAL [Concomitant]
  5. CORTANCYL [Concomitant]
  6. CELLCEPT                           /01275102/ [Concomitant]
  7. BACTRIM [Concomitant]
  8. INEXIUM                            /01479302/ [Concomitant]
  9. ORACILLINE                         /00001801/ [Concomitant]
  10. SOLIRIS [Concomitant]
  11. TRIATEC                            /00885601/ [Concomitant]
  12. PRAVASTATIN SODIUM [Concomitant]
  13. AMLOR [Concomitant]
  14. CALCIPARINE [Concomitant]
  15. VITAMINE B1 B6 BAYER [Concomitant]

REACTIONS (3)
  - Generalised tonic-clonic seizure [Recovered/Resolved]
  - Hallucination, visual [Recovered/Resolved]
  - Hallucination, auditory [Recovered/Resolved]
